FAERS Safety Report 17820435 (Version 1)
Quarter: 2020Q2

REPORT INFORMATION
  Report Type: Report from Study
  Country: DE (occurrence: DE)
  Receive Date: 20200525
  Receipt Date: 20200525
  Transmission Date: 20200714
  Serious: Yes (Other)
  Sender: FDA-Public Use
  Company Number: DE-ROCHE-2064429

PATIENT
  Age: 37 Year
  Sex: Female

DRUGS (5)
  1. ABRAXANE [Suspect]
     Active Substance: PACLITAXEL
     Indication: BREAST CANCER METASTATIC
     Route: 042
     Dates: start: 20171214
  2. TRASTUZUMAB. [Suspect]
     Active Substance: TRASTUZUMAB
     Indication: BREAST CANCER METASTATIC
     Route: 042
     Dates: start: 20171214
  3. PERTUZUMAB. [Suspect]
     Active Substance: PERTUZUMAB
     Indication: BREAST CANCER METASTATIC
     Route: 042
     Dates: start: 20171214
  4. ABRAXANE [Suspect]
     Active Substance: PACLITAXEL
     Dosage: DAY 1,8 OF A CYCLE OF 22 DAYS
     Route: 042
  5. PACLITAXEL. [Suspect]
     Active Substance: PACLITAXEL
     Indication: BREAST CANCER METASTATIC
     Route: 042
     Dates: start: 20171214

REACTIONS (14)
  - Dry eye [Recovered/Resolved]
  - Nausea [Unknown]
  - Neuropathy peripheral [Unknown]
  - Flushing [Recovered/Resolved]
  - Ill-defined disorder [Recovered/Resolved]
  - Hypersensitivity [Recovered/Resolved]
  - Embolism [Recovered/Resolved]
  - Dyspnoea [Recovered/Resolved]
  - Dysgeusia [Unknown]
  - Hypersensitivity [Recovered/Resolved]
  - Epistaxis [Unknown]
  - Constipation [Unknown]
  - Mucosal inflammation [Unknown]
  - Myalgia [Recovered/Resolved]

NARRATIVE: CASE EVENT DATE: 20171221
